FAERS Safety Report 7406396-0 (Version None)
Quarter: 2011Q2

REPORT INFORMATION
  Report Type: 
  Country: None (occurrence: None)
  Receive Date: 20110411
  Receipt Date: 20110329
  Transmission Date: 20111010
  Serious: Yes (Hospitalization, Other)
  Sender: FDA-Public Use
  Company Number: PHHY2011BR27368

PATIENT
  Sex: Male

DRUGS (2)
  1. DIOVAN AMLO FIX [Suspect]
     Dosage: 160/10MG
     Route: 048
  2. DIOVAN AMLO FIX [Suspect]
     Dosage: DOSAGE WAS GRADUALLY DECREASED
     Route: 048

REACTIONS (6)
  - RENAL FAILURE CHRONIC [None]
  - BLOOD PRESSURE DECREASED [None]
  - BLOOD UREA INCREASED [None]
  - BLOOD POTASSIUM INCREASED [None]
  - BLOOD PRESSURE FLUCTUATION [None]
  - BLOOD CREATINE INCREASED [None]
